FAERS Safety Report 5807607-5 (Version None)
Quarter: 2008Q3

REPORT INFORMATION
  Report Type: 
  Country: None (occurrence: None)
  Receive Date: 20080711
  Receipt Date: 20080630
  Transmission Date: 20090109
  Serious: Yes (Life-Threatening, Hospitalization)
  Sender: FDA-Public Use
  Company Number: NL-WYE-G01794308

PATIENT
  Age: 49 Year
  Sex: Female
  Weight: 85 kg

DRUGS (2)
  1. EFFEXOR XR [Suspect]
     Indication: DEPRESSION
     Dates: start: 20071107, end: 20080420
  2. MIRTAZAPINE [Suspect]
     Indication: INSOMNIA
     Dates: start: 20071215, end: 20080420

REACTIONS (20)
  - ANTIDEPRESSANT DRUG LEVEL INCREASED [None]
  - APATHY [None]
  - BLOOD PRESSURE DIASTOLIC DECREASED [None]
  - COLITIS [None]
  - CONDITION AGGRAVATED [None]
  - CONSTIPATION [None]
  - DEPRESSION [None]
  - DIZZINESS [None]
  - DRY EYE [None]
  - DRY MOUTH [None]
  - HYPERTONIA [None]
  - HYPOTHERMIA [None]
  - INSOMNIA [None]
  - MUSCLE SPASMS [None]
  - MYOCLONUS [None]
  - NAUSEA [None]
  - SUICIDAL IDEATION [None]
  - SUICIDE ATTEMPT [None]
  - VISUAL ACUITY REDUCED [None]
  - WEIGHT DECREASED [None]
